FAERS Safety Report 10763979 (Version 2)
Quarter: 2015Q1

REPORT INFORMATION
  Report Type: Spontaneous
  Country: US (occurrence: US)
  Receive Date: 20150204
  Receipt Date: 20150209
  Transmission Date: 20150721
  Serious: Yes (Death, Other)
  Sender: FDA-Public Use
  Company Number: US-RB-072743-15

PATIENT
  Age: 23 Year
  Sex: Female

DRUGS (4)
  1. ZOLOFT [Suspect]
     Active Substance: SERTRALINE HYDROCHLORIDE
     Indication: COMPLETED SUICIDE
     Dosage: SMALL AMOUNT
     Route: 048
  2. MUCINEX [Suspect]
     Active Substance: GUAIFENESIN
     Indication: COMPLETED SUICIDE
     Dosage: OVERDOSE, TOOK 10 TABLETS.
     Route: 048
  3. ETHANOL [Suspect]
     Active Substance: ALCOHOL
     Indication: COMPLETED SUICIDE
     Dosage: SMALL AMOUNT
     Route: 048
  4. CETIRIZINE [Suspect]
     Active Substance: CETIRIZINE HYDROCHLORIDE
     Indication: COMPLETED SUICIDE
     Dosage: SMALL AMOUNT
     Route: 048

REACTIONS (15)
  - Interstitial lung disease [Unknown]
  - Renal venous congestion [Unknown]
  - Sinus bradycardia [Not Recovered/Not Resolved]
  - Vomiting [Unknown]
  - Cardiac arrest [Unknown]
  - Hepatic congestion [Unknown]
  - Dysarthria [Unknown]
  - Intentional overdose [Fatal]
  - Depressed level of consciousness [Unknown]
  - Hypopnoea [Unknown]
  - Suicide attempt [Fatal]
  - Ventricular fibrillation [Unknown]
  - Sinus tachycardia [Recovered/Resolved]
  - Unresponsive to stimuli [Unknown]
  - Atelectasis [Unknown]
